FAERS Safety Report 26115102 (Version 1)
Quarter: 2025Q4

REPORT INFORMATION
  Report Type: Spontaneous
  Country: US (occurrence: None)
  Receive Date: 20251203
  Receipt Date: 20251203
  Transmission Date: 20260117
  Serious: Yes (Other)
  Sender: APOTEX
  Company Number: US-APOTEX-2025AP033198

PATIENT
  Age: 45 Year
  Sex: Male

DRUGS (1)
  1. TESTOSTERONE [Suspect]
     Active Substance: TESTOSTERONE
     Indication: Primary hypogonadism
     Dosage: UNK
     Route: 065

REACTIONS (2)
  - Embolism venous [Unknown]
  - Polycythaemia [Unknown]
